FAERS Safety Report 5296737-5 (Version None)
Quarter: 2007Q2

REPORT INFORMATION
  Report Type: 
  Country: None (occurrence: None)
  Receive Date: 20070413
  Receipt Date: 20070404
  Transmission Date: 20071010
  Serious: Yes (Death)
  Sender: FDA-Public Use
  Company Number: SG-PFIZER INC-2007026987

PATIENT

DRUGS (3)
  1. IRINOTECAN HCL [Suspect]
     Indication: NEOPLASM
     Dosage: DAILY DOSE:60MG/M*2-FREQ:DAYS 1 AND 8
  2. CARBOPLATIN [Suspect]
     Dosage: TEXT:2 AUC-FREQ:DAYS 1 AND 8
  3. GEMCITABINE HCL [Suspect]
     Dosage: DAILY DOSE:800MG/M*2-FREQ:DAYS 1 AND 8

REACTIONS (1)
  - ACUTE HEPATIC FAILURE [None]
